FAERS Safety Report 4980516-X (Version None)
Quarter: 2006Q2

REPORT INFORMATION
  Report Type: 
  Country: None (occurrence: None)
  Receive Date: 20060424
  Receipt Date: 20060328
  Transmission Date: 20061013
  Serious: Yes (Other)
  Sender: FDA-Public Use
  Company Number: GB-GLAXOSMITHKLINE-B0418559A

PATIENT
  Age: 72 Year
  Sex: Female

DRUGS (2)
  1. NIQUITIN CQ CLEAR 21MG [Suspect]
     Indication: EX-SMOKER
     Dosage: 21MG PER DAY
     Route: 062
  2. BLOOD PRESSURE MEDICATION [Concomitant]
     Indication: HYPERTENSION

REACTIONS (7)
  - CIRCULATORY COLLAPSE [None]
  - DIZZINESS [None]
  - DYSSTASIA [None]
  - GAIT DISTURBANCE [None]
  - HYPERTENSION [None]
  - HYPOAESTHESIA [None]
  - TREMOR [None]
